FAERS Safety Report 14772308 (Version 3)
Quarter: 2018Q4

REPORT INFORMATION
  Report Type: Spontaneous
  Country: PT (occurrence: PT)
  Receive Date: 20180418
  Receipt Date: 20181115
  Transmission Date: 20190204
  Serious: Yes (Other)
  Sender: FDA-Public Use
  Company Number: PT-009507513-1804PRT006363

PATIENT
  Age: 72 Year
  Sex: Male

DRUGS (1)
  1. KEYTRUDA [Suspect]
     Active Substance: PEMBROLIZUMAB
     Indication: LUNG ADENOCARCINOMA STAGE III
     Dosage: 200 MILLIGRAM, Q3W(7 CYCLES)
     Dates: start: 20171110, end: 20180320

REACTIONS (4)
  - Malignant neoplasm progression [Unknown]
  - Drug ineffective [Unknown]
  - Nasal cavity cancer [Unknown]
  - Dry mouth [Unknown]
